FAERS Safety Report 7183143-1 (Version None)
Quarter: 2010Q4

REPORT INFORMATION
  Report Type: 
  Country: None (occurrence: None)
  Receive Date: 20101222
  Receipt Date: 20100616
  Transmission Date: 20110411
  Serious: Yes (Other)
  Sender: FDA-Public Use
  Company Number: US-PFIZER INC-2010075988

PATIENT
  Sex: Female

DRUGS (3)
  1. HALCION [Suspect]
     Indication: INSOMNIA
     Dosage: 0.125 MG, UNK
     Route: 048
     Dates: start: 19950101, end: 20100615
  2. CRESTOR [Concomitant]
     Dosage: UNK
  3. DARIFENACIN HYDROBROMIDE [Concomitant]
     Dosage: UNK

REACTIONS (1)
  - TACHYCARDIA [None]
